FAERS Safety Report 9879927 (Version 1)
Quarter: 2014Q1

REPORT INFORMATION
  Report Type: Spontaneous
  Country: US (occurrence: US)
  Receive Date: 20140207
  Receipt Date: 20140207
  Transmission Date: 20141002
  Serious: No
  Sender: FDA-Public Use
  Company Number: US-009507513-1402USA001012

PATIENT
  Sex: Female

DRUGS (1)
  1. NUVARING [Suspect]
     Dosage: CONTINUOUS USE
     Route: 067

REACTIONS (2)
  - Metrorrhagia [Unknown]
  - Incorrect drug administration duration [Unknown]
